FAERS Safety Report 10327238 (Version 16)
Quarter: 2018Q2

REPORT INFORMATION
  Report Type: Report from Study
  Country: CA (occurrence: CA)
  Receive Date: 20140720
  Receipt Date: 20180621
  Transmission Date: 20180711
  Serious: Yes (Hospitalization, Other)
  Sender: FDA-Public Use
  Company Number: CA-ROCHE-1436107

PATIENT
  Age: 53 Year
  Sex: Female
  Weight: 74.46 kg

DRUGS (8)
  1. CIPRALEX [Concomitant]
     Active Substance: ESCITALOPRAM OXALATE
  2. FOLIC ACID. [Concomitant]
     Active Substance: FOLIC ACID
  3. ACTEMRA [Suspect]
     Active Substance: TOCILIZUMAB
     Route: 058
  4. ACTEMRA [Suspect]
     Active Substance: TOCILIZUMAB
     Indication: RHEUMATOID ARTHRITIS
     Route: 042
     Dates: start: 20140320
  5. ACTEMRA [Suspect]
     Active Substance: TOCILIZUMAB
     Indication: RHEUMATOID ARTHRITIS
     Route: 058
     Dates: start: 20160519
  6. ACTEMRA [Suspect]
     Active Substance: TOCILIZUMAB
     Route: 042
     Dates: start: 20150506, end: 20160331
  7. METHOTREXATE. [Concomitant]
     Active Substance: METHOTREXATE
     Dosage: MEDICATION STOPPED ON UNKNOWN DATE
     Route: 065
  8. ARAVA [Concomitant]
     Active Substance: LEFLUNOMIDE

REACTIONS (23)
  - Helicobacter infection [Recovering/Resolving]
  - Nasopharyngitis [Not Recovered/Not Resolved]
  - Herpes zoster [Recovered/Resolved]
  - Drug effect decreased [Not Recovered/Not Resolved]
  - Pain [Not Recovered/Not Resolved]
  - Drug ineffective [Unknown]
  - Genital herpes [Not Recovered/Not Resolved]
  - Inappropriate schedule of drug administration [Unknown]
  - Influenza [Recovering/Resolving]
  - Ear infection [Unknown]
  - Weight increased [Not Recovered/Not Resolved]
  - Weight decreased [Unknown]
  - Hypoaesthesia [Not Recovered/Not Resolved]
  - Discomfort [Not Recovered/Not Resolved]
  - Tonsillitis [Not Recovered/Not Resolved]
  - Cough [Not Recovered/Not Resolved]
  - Herpes virus infection [Not Recovered/Not Resolved]
  - Joint swelling [Not Recovered/Not Resolved]
  - Rash [Unknown]
  - Arthralgia [Unknown]
  - Rheumatoid arthritis [Unknown]
  - Depression [Not Recovered/Not Resolved]
  - Drug administration error [Unknown]

NARRATIVE: CASE EVENT DATE: 201404
